FAERS Safety Report 10096060 (Version 2)
Quarter: 2014Q2

REPORT INFORMATION
  Report Type: Spontaneous
  Country: US (occurrence: US)
  Receive Date: 20140422
  Receipt Date: 20140513
  Transmission Date: 20141212
  Serious: Yes (Hospitalization)
  Sender: FDA-Public Use
  Company Number: US-BAYER-2014-056710

PATIENT
  Age: 27 Year
  Sex: Female
  Weight: 121 kg

DRUGS (9)
  1. YASMIN [Suspect]
  2. AMOXICILLIN [Concomitant]
     Dosage: 500 MG, 1 TABLET EVERY 12 HOURS DAILY
  3. CLARINEX-D [Concomitant]
     Dosage: 2.5-120 MG TABLET, 1 TABLET EVERY 12 HOURS AS NEEDED
  4. AMOXICILLIN W/CLAVULANATE POTASSIUM [Concomitant]
     Dosage: 500-125 MG, 1 TABLET EVERY 12 HOURS DAILY
  5. NASONEX [Concomitant]
     Dosage: 50 MCG SUSPENSION, 1 UNIT DOSE 2 TIMES A DAY
  6. CLARITIN-D [Concomitant]
     Dosage: 1 DF, BID PRN
     Dates: start: 20100318
  7. PENICILLIN V POTASSIUM [Concomitant]
     Dosage: 1 DF, TID
     Dates: start: 20100330
  8. PERCOCET [Concomitant]
     Dosage: 1 DF, QID PRN
     Dates: start: 20100507
  9. MULTIVITAMIN [Concomitant]

REACTIONS (2)
  - Deep vein thrombosis [None]
  - Pulmonary embolism [None]
